FAERS Safety Report 5178019-5 (Version None)
Quarter: 2006Q4

REPORT INFORMATION
  Report Type: 
  Country: None (occurrence: None)
  Receive Date: 20061208
  Receipt Date: 20061129
  Transmission Date: 20070319
  Serious: Yes (Hospitalization)
  Sender: FDA-Public Use
  Company Number: 2006136180

PATIENT
  Age: 16 Year
  Sex: Male

DRUGS (3)
  1. ZIPRASIDONE HCL [Suspect]
     Indication: SCHIZOAFFECTIVE DISORDER
     Dosage: (120 MG), ORAL
     Route: 048
     Dates: start: 20041001
  2. FLUOXETINE [Concomitant]
  3. BENZTROPINE MESYLATE [Concomitant]

REACTIONS (5)
  - DISEASE PROGRESSION [None]
  - INTENTIONAL SELF-INJURY [None]
  - SELF INJURIOUS BEHAVIOUR [None]
  - SELF-INJURIOUS IDEATION [None]
  - SKIN LACERATION [None]
